FAERS Safety Report 10235680 (Version 1)
Quarter: 2014Q2

REPORT INFORMATION
  Report Type: Spontaneous
  Country: US (occurrence: US)
  Receive Date: 20140613
  Receipt Date: 20140613
  Transmission Date: 20141212
  Serious: Yes (Life-Threatening, Hospitalization)
  Sender: FDA-Public Use
  Company Number: US-B.I. PHARMACEUTICALS,INC./RIDGEFIELD-2014-BI-25994BP

PATIENT
  Sex: Female

DRUGS (14)
  1. COMBIVENT [Suspect]
     Indication: ASTHMA
     Dosage: FORMULATION: RESPIMAT INHALATION SPRAY. STRENGTH: 20 MCG / 100 MCG; DAILY DOSE: 80 MCG/400 MG
     Route: 055
     Dates: start: 2013
  2. SIMVASTATIN [Concomitant]
     Dosage: 20 MG
     Route: 048
  3. CHANTIX [Concomitant]
     Indication: TOBACCO USER
     Dosage: 2 MG
     Route: 048
  4. VALTREX [Concomitant]
     Indication: HERPES ZOSTER
     Dosage: 500 MG
     Route: 048
  5. METOPROLOL [Concomitant]
     Indication: HYPERTENSION
     Dosage: 25 MG
     Route: 048
  6. AMITRIPTYLINE [Concomitant]
     Indication: SLEEP DISORDER
     Dosage: 100 MG
     Route: 048
  7. CLONIDINE [Concomitant]
     Indication: HYPERTENSION
     Dosage: 0.1 MG
     Route: 048
  8. LISINOPRIL [Concomitant]
     Dosage: 40 MG
     Route: 048
  9. XARELTO [Concomitant]
     Indication: ANTICOAGULANT THERAPY
     Dosage: 20 MG
     Route: 048
  10. PRILOSEC [Concomitant]
     Indication: GASTROOESOPHAGEAL REFLUX DISEASE
     Dosage: 40 MG
     Route: 048
  11. HYDROCHLOROTHIAZIDE [Concomitant]
     Indication: FLUID RETENTION
     Dosage: 25 MG
     Route: 048
  12. AMPLODIPINE [Concomitant]
     Dosage: 10 MG
     Route: 048
  13. CLONAZEPAM [Concomitant]
     Dosage: 1 MG
     Route: 048
  14. CITALOPRAM [Concomitant]
     Indication: BIPOLAR DISORDER
     Dosage: 40 MG
     Route: 048

REACTIONS (4)
  - Lung neoplasm malignant [Not Recovered/Not Resolved]
  - Pain in extremity [Not Recovered/Not Resolved]
  - Off label use [Unknown]
  - Drug ineffective [Not Recovered/Not Resolved]
